FAERS Safety Report 7050691-4 (Version None)
Quarter: 2010Q4

REPORT INFORMATION
  Report Type: 
  Country: None (occurrence: None)
  Receive Date: 20101019
  Receipt Date: 20101011
  Transmission Date: 20110411
  Serious: Yes (Hospitalization)
  Sender: FDA-Public Use
  Company Number: US-BIOGENIDEC-2010BI028843

PATIENT
  Age: 55 Year
  Sex: Male

DRUGS (2)
  1. TYSABRI [Suspect]
     Indication: MULTIPLE SCLEROSIS
     Route: 042
     Dates: start: 20070606, end: 20100401
  2. TYSABRI [Suspect]
     Route: 042
     Dates: start: 20101001

REACTIONS (4)
  - AMAUROSIS FUGAX [None]
  - CAROTID ARTERY STENOSIS [None]
  - FEELING ABNORMAL [None]
  - PROCEDURAL PAIN [None]
